FAERS Safety Report 4876063-6 (Version None)
Quarter: 2005Q4

REPORT INFORMATION
  Report Type: 
  Country: None (occurrence: None)
  Receive Date: 20051206
  Receipt Date: 20051025
  Transmission Date: 20060501
  Serious: No
  Sender: FDA-Public Use
  Company Number: USA0510111737

PATIENT
  Age: 33 Year
  Sex: Male

DRUGS (3)
  1. CYMBALTA [Suspect]
     Indication: DEPRESSION
     Dosage: 60 MG DAY
     Dates: start: 20051004
  2. NORTRIPTYLINE HCL [Concomitant]
  3. KLONOPIN [Concomitant]

REACTIONS (8)
  - ANOREXIA [None]
  - BRUXISM [None]
  - HEADACHE [None]
  - INSOMNIA [None]
  - LIBIDO DECREASED [None]
  - TOOTH INJURY [None]
  - VERTIGO [None]
  - VISION BLURRED [None]
